FAERS Safety Report 14666278 (Version 2)
Quarter: 2018Q2

REPORT INFORMATION
  Report Type: Spontaneous
  Country: DE (occurrence: DE)
  Receive Date: 20180321
  Receipt Date: 20180413
  Transmission Date: 20180711
  Serious: Yes (Hospitalization)
  Sender: FDA-Public Use
  Company Number: PHHY2018DE047214

PATIENT
  Sex: Male
  Weight: 84 kg

DRUGS (1)
  1. CLINDAHEXAL [Suspect]
     Active Substance: CLINDAMYCIN HYDROCHLORIDE
     Indication: PULPITIS DENTAL
     Dosage: UNK UNK, TID
     Route: 065
     Dates: start: 20180201

REACTIONS (5)
  - Vocal cord disorder [Recovering/Resolving]
  - Chemical burn [Recovering/Resolving]
  - Oedema mucosal [Recovering/Resolving]
  - Laryngeal injury [Recovering/Resolving]
  - Dyspnoea [Recovering/Resolving]

NARRATIVE: CASE EVENT DATE: 20180201
